FAERS Safety Report 19577728 (Version 1)
Quarter: 2021Q3

REPORT INFORMATION
  Report Type: Spontaneous
  Country: US (occurrence: US)
  Receive Date: 20210719
  Receipt Date: 20210719
  Transmission Date: 20211014
  Serious: No
  Sender: FDA-Public Use
  Company Number: US-PFIZER INC-2021440664

PATIENT
  Age: 80 Year
  Sex: Male
  Weight: 83.91 kg

DRUGS (16)
  1. LOSARTAN. [Concomitant]
     Active Substance: LOSARTAN
     Indication: BLOOD PRESSURE MEASUREMENT
     Dosage: 50 MG, 1X/DAY TAKING FOR AT LEAST 5 YEARS)
     Route: 048
  2. ALPRAZOLAM. [Suspect]
     Active Substance: ALPRAZOLAM
     Indication: FEELING OF RELAXATION
     Dosage: 1 DF, TWICE DAILY (TAKE ONE TWICE DAILY BY MOUTH)
     Route: 048
     Dates: start: 2016
  3. FLINTSTONES [Concomitant]
     Indication: BLOOD IRON
     Dosage: UNK, 1X/DAY ( TAKING THREE WEEKS)
     Route: 048
  4. MEMANTINE. [Concomitant]
     Active Substance: MEMANTINE
     Indication: MEMORY IMPAIRMENT
     Dosage: 10 MG, 2X/DAY (MORNING AND NIGHT; TAKING FOR ABOUT 5 YEARS)
     Route: 048
  5. VITAMIN D3 [Concomitant]
     Active Substance: CHOLECALCIFEROL
     Dosage: 25 MG, 1X/DAY (RECENTLY ADDED)
     Route: 048
  6. AMLODIPINE [Concomitant]
     Active Substance: AMLODIPINE BESYLATE
     Indication: BLOOD PRESSURE MEASUREMENT
     Dosage: 5 MG, 1X/DAY (TAKING FOR ABOUT 5 YEARS)
     Route: 048
  7. CELECOXIB. [Concomitant]
     Active Substance: CELECOXIB
     Indication: ARTHRITIS
     Dosage: 200 MG, (TAKE ONE THREE TIMES A WEEK BY MOUTH MONDAY, WEDNESDAY AND FRIDAY; TAKING FOR 4?5 YEARS)
  8. GLUCOSAMINE + CHONDROITIN + MSM [Concomitant]
     Dosage: UNK UNK, 1X/DAY
     Route: 048
  9. DONEPEZIL. [Concomitant]
     Active Substance: DONEPEZIL
     Indication: MEMORY IMPAIRMENT
     Dosage: 10 MG, 1X/DAY (TAKING FOR ABOUT 5 YEARS)
     Route: 048
  10. CHOLESTYRAMINE. [Concomitant]
     Active Substance: CHOLESTYRAMINE
     Indication: BLOOD CHOLESTEROL
     Dosage: 4 G, DAILY(TAKE ONE PACKET MIXED IN WATER DAILY; TAKING FOR A YEAR AND HALF)
     Route: 048
  11. MELATONIN [Concomitant]
     Active Substance: MELATONIN
     Indication: SLEEP DISORDER
     Dosage: 10 MG, 1X/DAY (TAKING FOR TWO WEEKS)
     Route: 048
  12. ALPROLIX [Concomitant]
     Active Substance: EFTRENONACOG ALFA
     Dosage: UNK TAKING FOR A LONG TIME; EVERY TEN DAYS STARTED 5 YEARS AGO)
  13. CO?Q?10 PLUS [Concomitant]
     Dosage: 100 MG, 1X/DAY (TAKING A LONG TIME)
     Route: 048
  14. VITAMIN B12 [Concomitant]
     Active Substance: CYANOCOBALAMIN
     Dosage: 500MG; TAKE ONCE DAILY BY MOUTH (TAKING FOR 6 TO 9 MONTHS)
  15. DOXAZOSIN [Concomitant]
     Active Substance: DOXAZOSIN MESYLATE
     Indication: BLOOD PRESSURE MEASUREMENT
     Dosage: 4 MG, 1X/DAY (TAKING FOR ABOUT 5 YEARS)
     Route: 048
  16. VITAMIN C + ROSEHIP [Concomitant]
     Dosage: 500 MG, 1X/DAY (TAKING FOR THREE WEEKS)
     Route: 048

REACTIONS (3)
  - Off label use [Unknown]
  - Wound [Unknown]
  - Rash [Recovering/Resolving]

NARRATIVE: CASE EVENT DATE: 2016
